FAERS Safety Report 16923001 (Version 1)
Quarter: 2019Q4

REPORT INFORMATION
  Report Type: Spontaneous
  Country: US (occurrence: US)
  Receive Date: 20191016
  Receipt Date: 20191016
  Transmission Date: 20200122
  Serious: No
  Sender: FDA-Public Use
  Company Number: US-AMGEN-USASP2019163805

PATIENT
  Age: 65 Year
  Sex: Female

DRUGS (1)
  1. PROLIA [Suspect]
     Active Substance: DENOSUMAB
     Indication: OSTEOPOROSIS POSTMENOPAUSAL
     Dosage: 60 MILLIGRAM, Q6MO
     Route: 065
     Dates: start: 2017

REACTIONS (4)
  - Back pain [Recovering/Resolving]
  - Musculoskeletal pain [Recovering/Resolving]
  - Pain in jaw [Recovering/Resolving]
  - Loose tooth [Not Recovered/Not Resolved]

NARRATIVE: CASE EVENT DATE: 2019
